FAERS Safety Report 5229022-8 (Version None)
Quarter: 2007Q1

REPORT INFORMATION
  Report Type: 
  Country: None (occurrence: None)
  Receive Date: 20061201
  Receipt Date: 20061030
  Transmission Date: 20070707
  Serious: No
  Sender: FDA-Public Use
  Company Number: US200609003997

PATIENT
  Age: 44 Year
  Sex: Female

DRUGS (2)
  1. CYMBALTA [Suspect]
     Indication: MIGRAINE
     Dosage: 30 MG
     Dates: start: 20050501
  2. ALL OTHER THERAPEUTIC PRODUCTS [Concomitant]

REACTIONS (6)
  - ABNORMAL BEHAVIOUR [None]
  - DEPRESSION [None]
  - IRRITABILITY [None]
  - SOCIAL AVOIDANT BEHAVIOUR [None]
  - SUICIDAL IDEATION [None]
  - WEIGHT DECREASED [None]
